FAERS Safety Report 8223445-0 (Version None)
Quarter: 2012Q1

REPORT INFORMATION
  Report Type: 
  Country: None (occurrence: None)
  Receive Date: 20120316
  Receipt Date: 20120301
  Transmission Date: 20120608
  Serious: Yes (Life-Threatening)
  Sender: FDA-Public Use
  Company Number: US-2012-10244

PATIENT
  Age: 55 Year
  Sex: Female

DRUGS (3)
  1. BUSULFEX [Suspect]
     Indication: ACUTE MYELOID LEUKAEMIA
     Dosage: 3.2 MG/KG, QD, INTRAVENOUS; 220.2 MG MILLIGRAM(S),
     Route: 042
     Dates: start: 20111208
  2. BUSULFEX [Suspect]
     Indication: ACUTE MYELOID LEUKAEMIA
     Dosage: 3.2 MG/KG, QD, INTRAVENOUS; 220.2 MG MILLIGRAM(S),
     Route: 042
     Dates: start: 20111205
  3. CYCLOPHOSPHAMIDE [Concomitant]

REACTIONS (2)
  - RESPIRATORY DISTRESS [None]
  - HYPOXIA [None]
